FAERS Safety Report 19413669 (Version 1)
Quarter: 2021Q2

REPORT INFORMATION
  Report Type: Report from Study
  Country: US (occurrence: US)
  Receive Date: 20210614
  Receipt Date: 20210614
  Transmission Date: 20210717
  Serious: Yes (Other)
  Sender: FDA-Public Use
  Company Number: NVSC2021US126661

PATIENT
  Sex: Female

DRUGS (1)
  1. KESIMPTA [Suspect]
     Active Substance: OFATUMUMAB
     Indication: MULTIPLE SCLEROSIS RELAPSE
     Dosage: ONCE A MONTH
     Route: 065

REACTIONS (7)
  - Coccydynia [Unknown]
  - Vitamin D decreased [Unknown]
  - Pollakiuria [Unknown]
  - Product temperature excursion issue [Unknown]
  - Diabetes mellitus [Unknown]
  - Ill-defined disorder [Unknown]
  - Headache [Unknown]
